FAERS Safety Report 4701635-9 (Version None)
Quarter: 2005Q2

REPORT INFORMATION
  Report Type: 
  Country: None (occurrence: None)
  Receive Date: 20050627
  Receipt Date: 20050614
  Transmission Date: 20051028
  Serious: Yes (Other)
  Sender: FDA-Public Use
  Company Number: 2005087123

PATIENT
  Age: 42 Year
  Sex: Female
  Weight: 68.9467 kg

DRUGS (2)
  1. DEPO-PROVERA [Suspect]
     Indication: CONTRACEPTION
     Dosage: 150 MG (150 MG, FIRST INJECTION, SECOND INJECTION), INTRAMUSCULAR
     Route: 030
     Dates: start: 20050421, end: 20050421
  2. DEPO-PROVERA [Suspect]
     Indication: CONTRACEPTION
     Dosage: 150 MG (150 MG, FIRST INJECTION, SECOND INJECTION), INTRAMUSCULAR
     Route: 030
     Dates: start: 20050613, end: 20050613

REACTIONS (5)
  - ABDOMINAL PAIN [None]
  - FUNGAL INFECTION [None]
  - HEADACHE [None]
  - METRORRHAGIA [None]
  - URINARY TRACT INFECTION [None]
